FAERS Safety Report 11625794 (Version 6)
Quarter: 2017Q4

REPORT INFORMATION
  Report Type: Spontaneous
  Country: US (occurrence: US)
  Receive Date: 20151013
  Receipt Date: 20171110
  Transmission Date: 20180320
  Serious: Yes (Other)
  Sender: FDA-Public Use
  Company Number: US-PFIZER INC-2015332826

PATIENT
  Age: 71 Year
  Sex: Female

DRUGS (11)
  1. LOSARTAN POTASSIUM. [Concomitant]
     Active Substance: LOSARTAN POTASSIUM
     Dosage: 50 MG, UNK
  2. ALPRAZOLAM. [Concomitant]
     Active Substance: ALPRAZOLAM
     Dosage: 0.5 MG, UNK
  3. OXYCODONE AND ACETAMINOPHEN [Concomitant]
     Active Substance: ACETAMINOPHEN\OXYCODONE HYDROCHLORIDE
     Dosage: UNK [OXYCODONE 7.5]/[ ACETAMINOPHEN 325]
  4. IBRANCE [Suspect]
     Active Substance: PALBOCICLIB
     Dosage: 125 MG, UNK
     Dates: start: 20151001
  5. METOPROLOL. [Concomitant]
     Active Substance: METOPROLOL
     Dosage: 25 MG, UNK
  6. IBRANCE [Suspect]
     Active Substance: PALBOCICLIB
     Indication: METASTASES TO BONE MARROW
     Dosage: 100 MG, CYCLIC (21 OUT OF 28 DAYS, ABOUT 9 MONTHS ON MEDICATION)
     Dates: start: 20150929
  7. WARFARIN [Concomitant]
     Active Substance: WARFARIN
     Dosage: 5 MG, UNK
  8. FASLODEX [Suspect]
     Active Substance: FULVESTRANT
     Dosage: UNK
     Dates: start: 201509
  9. GAVILYTE - C [Concomitant]
     Active Substance: POLYETHYLENE GLYCOL 3350\POTASSIUM CHLORIDE\SODIUM BICARBONATE\SODIUM CHLORIDE\SODIUM SULFATE ANHYDROUS
     Dosage: UNK
  10. NYSTATIN. [Concomitant]
     Active Substance: NYSTATIN
     Dosage: UNK (SUS 100000)
  11. IBRANCE [Suspect]
     Active Substance: PALBOCICLIB
     Dosage: 75 MG, CYCLIC (ONCE DAILY WITH FOOD FOR 21 DAYS, THEN 7 DAYS OFF)
     Route: 048

REACTIONS (13)
  - Cervical spinal stenosis [Unknown]
  - Nerve compression [Unknown]
  - Migraine [Unknown]
  - Diarrhoea [Unknown]
  - Bursitis [Unknown]
  - Product use in unapproved indication [Unknown]
  - Asthenia [Unknown]
  - Alopecia [Not Recovered/Not Resolved]
  - Haemoglobin decreased [Unknown]
  - Fatigue [Unknown]
  - Bronchitis [Recovered/Resolved]
  - Blood count abnormal [Unknown]
  - White blood cell count decreased [Unknown]

NARRATIVE: CASE EVENT DATE: 20150930
